FAERS Safety Report 8833346 (Version 2)
Quarter: 2013Q1

REPORT INFORMATION
  Report Type: Report from Study
  Country: DE (occurrence: DE)
  Receive Date: 20121010
  Receipt Date: 20130129
  Transmission Date: 20140127
  Serious: Yes (Death, Other)
  Sender: FDA-Public Use
  Company Number: DE-ROCHE-1095639

PATIENT
  Sex: 0

DRUGS (2)
  1. TRASTUZUMAB [Suspect]
     Indication: BREAST CANCER
     Route: 065
     Dates: start: 20110117, end: 20110920
  2. VINORELBINE [Concomitant]
     Indication: BREAST CANCER
     Dosage: 55/45
     Route: 042
     Dates: start: 20110117, end: 20110726

REACTIONS (2)
  - Neoplasm malignant [Fatal]
  - Cardiac failure congestive [Not Recovered/Not Resolved]
